FAERS Safety Report 10021933 (Version 3)
Quarter: 2014Q2

REPORT INFORMATION
  Report Type: Spontaneous
  Country: ES (occurrence: ES)
  Receive Date: 20140319
  Receipt Date: 20140428
  Transmission Date: 20141212
  Serious: Yes (Other)
  Sender: FDA-Public Use
  Company Number: ES-ALLERGAN-1405005US

PATIENT
  Age: 55 Year
  Sex: Female

DRUGS (1)
  1. GANFORT [Suspect]
     Indication: GLAUCOMA
     Dosage: 1 DROP IN EACH EYE, AT NIGHT
     Route: 047
     Dates: start: 201402

REACTIONS (3)
  - Herpes ophthalmic [Recovered/Resolved]
  - Eye injury [Recovered/Resolved]
  - Eye pain [Recovered/Resolved]
